FAERS Safety Report 9002237 (Version 1)
Quarter: 2013Q1

REPORT INFORMATION
  Report Type: Spontaneous
  Country: CN (occurrence: CN)
  Receive Date: 20130107
  Receipt Date: 20130107
  Transmission Date: 20140127
  Serious: Yes (Other)
  Sender: FDA-Public Use
  Company Number: CN-PFIZER INC-2013000409

PATIENT
  Age: 8 Year
  Sex: Male

DRUGS (1)
  1. VORICONAZOLE [Suspect]
     Dosage: 4MG/KG/D

REACTIONS (3)
  - Paralysis [Unknown]
  - Asthenia [Unknown]
  - Somnolence [Unknown]
